FAERS Safety Report 18258526 (Version 2)
Quarter: 2020Q4

REPORT INFORMATION
  Report Type: Spontaneous
  Country: IT (occurrence: IT)
  Receive Date: 20200911
  Receipt Date: 20201015
  Transmission Date: 20210113
  Serious: Yes (Other)
  Sender: FDA-Public Use
  Company Number: IT-MYLANLABS-2020M1078030

PATIENT
  Age: 72 Year
  Sex: Male
  Weight: 84 kg

DRUGS (1)
  1. EVEROLIMUS. [Suspect]
     Active Substance: EVEROLIMUS
     Indication: RENAL CANCER
     Dosage: 10 MILLIGRAM, QD
     Route: 048
     Dates: start: 20200721

REACTIONS (4)
  - Proteinuria [Recovering/Resolving]
  - Blood creatinine increased [Recovering/Resolving]
  - Dysuria [Not Recovered/Not Resolved]
  - Strangury [Not Recovered/Not Resolved]

NARRATIVE: CASE EVENT DATE: 20200811
